FAERS Safety Report 4861442-3 (Version None)
Quarter: 2005Q4

REPORT INFORMATION
  Report Type: 
  Country: None (occurrence: None)
  Receive Date: 20051220
  Receipt Date: 20051208
  Transmission Date: 20060501
  Serious: Yes (Hospitalization)
  Sender: FDA-Public Use
  Company Number: NL-JNJFOC-20051002264

PATIENT
  Sex: Female

DRUGS (1)
  1. DURAGESIC-100 [Suspect]
     Indication: DRUG USE FOR UNKNOWN INDICATION
     Dosage: THE PATIENT WAS ON DUROGESIC 25 MCG/HR THERAPY SINCE AT LEAST APR-2005, POSSIBLY LONGER.
     Route: 062

REACTIONS (3)
  - APNOEA [None]
  - HYPERVENTILATION [None]
  - PARAESTHESIA [None]
